FAERS Safety Report 7194223-9 (Version None)
Quarter: 2010Q4

REPORT INFORMATION
  Report Type: 
  Country: None (occurrence: None)
  Receive Date: 20101223
  Receipt Date: 20101216
  Transmission Date: 20110411
  Serious: Yes (Other)
  Sender: FDA-Public Use
  Company Number: DE-AMGEN-DEUSP2010009068

PATIENT

DRUGS (2)
  1. ENBREL [Suspect]
     Indication: RHEUMATOID ARTHRITIS
     Dosage: 50 MG, WEEKLY
     Dates: start: 20101001, end: 20101201
  2. ENBREL [Suspect]
     Dosage: UNK
     Dates: start: 20101201

REACTIONS (3)
  - APHTHOUS STOMATITIS [None]
  - TOOTH EXTRACTION [None]
  - TOOTH INFECTION [None]
